FAERS Safety Report 9529967 (Version 1)
Quarter: 2013Q3

REPORT INFORMATION
  Report Type: Spontaneous
  Country: FR (occurrence: FR)
  Receive Date: 20130917
  Receipt Date: 20130917
  Transmission Date: 20140515
  Serious: Yes (Hospitalization)
  Sender: FDA-Public Use
  Company Number: FR-ASTRAZENECA-2013SE69213

PATIENT
  Age: 26 Year
  Sex: Female

DRUGS (7)
  1. INEXIUM [Suspect]
     Route: 042
     Dates: start: 20130725, end: 20130730
  2. VOGALENE [Suspect]
     Dates: start: 20130724, end: 20130730
  3. ZOPHREN [Suspect]
     Dates: start: 20130722, end: 20130730
  4. PIPERACILLINE [Concomitant]
     Indication: ANTIBIOTIC THERAPY
     Dates: end: 201307
  5. TAZOBACTAM [Concomitant]
     Indication: ANTIBIOTIC THERAPY
     Dates: end: 201307
  6. AMIKACINE [Concomitant]
     Indication: ANTIBIOTIC THERAPY
     Dates: end: 201307
  7. VANCOMYCINE [Concomitant]
     Indication: ANTIBIOTIC THERAPY
     Dates: end: 201307

REACTIONS (8)
  - Septic shock [Recovering/Resolving]
  - Hyperthermia [Recovered/Resolved]
  - Tachycardia [Unknown]
  - Chills [Unknown]
  - Blood pressure increased [Unknown]
  - C-reactive protein increased [Unknown]
  - Hypotension [Unknown]
  - Pancytopenia [Recovering/Resolving]
